FAERS Safety Report 7794367-4 (Version None)
Quarter: 2011Q4

REPORT INFORMATION
  Report Type: 
  Country: None (occurrence: None)
  Receive Date: 20111004
  Receipt Date: 20110923
  Transmission Date: 20120403
  Serious: Yes (Other)
  Sender: FDA-Public Use
  Company Number: DE-SANOFI-AVENTIS-2011SA056392

PATIENT
  Age: 63 Year
  Sex: Male

DRUGS (13)
  1. FLUOROURACIL [Suspect]
     Route: 042
     Dates: start: 20110516
  2. MULTAQ [Concomitant]
     Dates: start: 20100501
  3. BEVACIZUMAB [Suspect]
     Route: 042
  4. OXALIPLATIN [Suspect]
     Route: 042
     Dates: end: 20110906
  5. LEUCOVORIN CALCIUM [Suspect]
     Route: 042
     Dates: start: 20110516, end: 20110822
  6. SIMVASTATIN [Concomitant]
  7. METOPROLOL TARTRATE [Concomitant]
  8. RAMIPRIL [Concomitant]
  9. FLUOROURACIL [Suspect]
     Route: 040
     Dates: start: 20110516
  10. LEUCOVORIN CALCIUM [Suspect]
     Route: 042
  11. ASPIRIN [Concomitant]
     Dates: start: 20110516
  12. OXALIPLATIN [Suspect]
     Route: 042
     Dates: start: 20110516, end: 20110822
  13. BEVACIZUMAB [Suspect]
     Route: 042
     Dates: start: 20110516, end: 20110905

REACTIONS (2)
  - LOSS OF CONSCIOUSNESS [None]
  - DRUG HYPERSENSITIVITY [None]
